FAERS Safety Report 4283715-8 (Version None)
Quarter: 2004Q1

REPORT INFORMATION
  Report Type: 
  Country: None (occurrence: None)
  Receive Date: 20040202
  Receipt Date: 20040126
  Transmission Date: 20041129
  Serious: Yes (Hospitalization, Other)
  Sender: FDA-Public Use
  Company Number: WAES 0401GBR00211

PATIENT
  Age: 88 Year
  Sex: Female

DRUGS (7)
  1. ACETAMINOPHEN AND DIHYDROCODEINE BITARTRATE [Concomitant]
     Dates: end: 20031216
  2. ACETAMINOPHEN AND PROPOXYPHENE HYDROCHLORIDE [Concomitant]
     Indication: PAIN
     Route: 048
  3. AMITRIPTYLINE HYDROCHLORIDE [Concomitant]
     Indication: PAIN
     Route: 048
     Dates: start: 20031111
  4. FUROSEMIDE [Concomitant]
     Route: 048
  5. PRINIVIL [Concomitant]
     Indication: HYPERTENSION
     Route: 048
     Dates: start: 19980101
  6. MORPHINE SULFATE [Concomitant]
     Indication: PAIN
     Route: 048
     Dates: start: 20020403
  7. VIOXX [Suspect]
     Indication: OSTEOARTHRITIS
     Route: 048
     Dates: start: 20030227

REACTIONS (4)
  - CONFUSIONAL STATE [None]
  - HAEMATEMESIS [None]
  - MOBILITY DECREASED [None]
  - OESOPHAGITIS [None]
